FAERS Safety Report 12608149 (Version 3)
Quarter: 2016Q3

REPORT INFORMATION
  Report Type: Other
  Country: US (occurrence: US)
  Receive Date: 20160729
  Receipt Date: 20160907
  Transmission Date: 20161109
  Serious: Yes (Hospitalization, Other)
  Sender: FDA-Public Use
  Company Number: US-SHIRE-US201609078

PATIENT
  Age: 50 Year
  Sex: Female

DRUGS (1)
  1. NATPARA (PARATHYROID HORMONE) [Suspect]
     Active Substance: PARATHYROID HORMONE
     Indication: PRODUCT USED FOR UNKNOWN INDICATION
     Dosage: 25 ?G, UNKNOWN
     Route: 058

REACTIONS (12)
  - Musculoskeletal stiffness [Recovered/Resolved]
  - Headache [Recovered/Resolved]
  - Pain [Unknown]
  - Guillain-Barre syndrome [Unknown]
  - Hypoaesthesia [Recovering/Resolving]
  - Product distribution issue [Unknown]
  - Calcium ionised increased [Unknown]
  - Incorrect product storage [Unknown]
  - Dyspnoea [Unknown]
  - Blood calcium decreased [Unknown]
  - Fatigue [Unknown]
  - Quadriplegia [Recovered/Resolved]

NARRATIVE: CASE EVENT DATE: 20140714
